FAERS Safety Report 5441993-3 (Version None)
Quarter: 2007Q3

REPORT INFORMATION
  Report Type: 
  Country: None (occurrence: None)
  Receive Date: 20070904
  Receipt Date: 20070830
  Transmission Date: 20080115
  Serious: Yes (Death, Hospitalization)
  Sender: FDA-Public Use
  Company Number: B0485395A

PATIENT
  Age: 45 Year
  Sex: Male

DRUGS (10)
  1. COMBIVIR [Suspect]
     Indication: HIV INFECTION
  2. DARUNAVIR [Suspect]
     Indication: HIV INFECTION
     Dosage: 2TAB TWICE PER DAY
     Dates: start: 20070809
  3. RITONAVIR [Suspect]
     Indication: HIV INFECTION
  4. DAPSONE [Concomitant]
     Dosage: 100MG PER DAY
  5. FLUCONAZOLE [Concomitant]
     Dosage: 200MG PER DAY
  6. ATARAX [Concomitant]
     Dosage: 25MG AS REQUIRED
  7. AQUEOUS CREAM [Concomitant]
  8. HYDROCORTISONE CREAM [Concomitant]
  9. VIDEX [Concomitant]
     Dosage: 250MG PER DAY
     Route: 048
     Dates: start: 20070809
  10. PLASMA [Concomitant]

REACTIONS (5)
  - ANAEMIA [None]
  - GRAM STAIN POSITIVE [None]
  - NEUTROPENIC SEPSIS [None]
  - PANCYTOPENIA [None]
  - SEPTIC SHOCK [None]
